FAERS Safety Report 5923535-9 (Version None)
Quarter: 2008Q4

REPORT INFORMATION
  Report Type: 
  Country: None (occurrence: None)
  Receive Date: 20081020
  Receipt Date: 20081008
  Transmission Date: 20090506
  Serious: Yes (Hospitalization)
  Sender: FDA-Public Use
  Company Number: US-AMGEN-QUU312442

PATIENT
  Sex: Female

DRUGS (1)
  1. ENBREL [Suspect]
     Indication: RHEUMATOID ARTHRITIS
     Route: 058
     Dates: start: 20080601, end: 20080908

REACTIONS (5)
  - ABDOMINAL PAIN [None]
  - DIZZINESS [None]
  - GASTROINTESTINAL STOMA COMPLICATION [None]
  - HAEMORRHAGE [None]
  - PYREXIA [None]
